FAERS Safety Report 15948920 (Version 1)
Quarter: 2019Q1

REPORT INFORMATION
  Report Type: Spontaneous
  Country: DE (occurrence: DE)
  Receive Date: 20190212
  Receipt Date: 20190212
  Transmission Date: 20190417
  Serious: Yes (Other)
  Sender: FDA-Public Use
  Company Number: DE-ALIMERA SCIENCES LIMITED-DE-IL-2019-004284

PATIENT

DRUGS (4)
  1. ILUVIEN [Suspect]
     Active Substance: FLUOCINOLONE ACETONIDE
     Indication: MACULAR OEDEMA
  2. TRIAMCINOLONE [Concomitant]
     Active Substance: TRIAMCINOLONE
     Indication: VASCULITIS
     Route: 031
  3. DEXAMETHASONE. [Concomitant]
     Active Substance: DEXAMETHASONE
     Indication: VASCULITIS
     Route: 031
  4. ILUVIEN [Suspect]
     Active Substance: FLUOCINOLONE ACETONIDE
     Indication: VASCULITIS
     Dosage: 0.25 ?G, RIGHT EYE
     Route: 031

REACTIONS (5)
  - Cataract [Unknown]
  - Internal limiting membrane peeling [Recovered/Resolved]
  - Off label use [Unknown]
  - Cataract operation [Recovered/Resolved]
  - Vitrectomy [Recovered/Resolved]
